FAERS Safety Report 14454212 (Version 2)
Quarter: 2018Q4

REPORT INFORMATION
  Report Type: Report from Study
  Country: ES (occurrence: ES)
  Receive Date: 20180129
  Receipt Date: 20181130
  Transmission Date: 20190204
  Serious: Yes (Death, Life-Threatening, Hospitalization, Other)
  Sender: FDA-Public Use
  Company Number: ES-ASTRAZENECA-2018SE11375

PATIENT
  Age: 25812 Day
  Sex: Female

DRUGS (9)
  1. CARBOPLATIN. [Suspect]
     Active Substance: CARBOPLATIN
     Indication: OVARIAN CANCER
     Dosage: CYCLE 6
     Route: 042
     Dates: start: 20110607, end: 20110923
  2. CARBOPLATIN. [Suspect]
     Active Substance: CARBOPLATIN
     Indication: OVARIAN CANCER
     Dosage: CYCLE 6
     Route: 042
     Dates: start: 20140502, end: 20140922
  3. HEMICRANEAL [Concomitant]
     Indication: MIGRAINE
     Dosage: 1 AS REQUIRED
     Route: 048
  4. CAELIX [Suspect]
     Active Substance: DOXORUBICIN HYDROCHLORIDE
     Route: 065
  5. TAXOL [Suspect]
     Active Substance: PACLITAXEL
     Indication: OVARIAN CANCER
     Dosage: CYCLE 6
     Route: 042
     Dates: start: 20110607, end: 20110923
  6. TRYPTIZOL [Concomitant]
     Active Substance: AMITRIPTYLINE HYDROCHLORIDE
     Indication: ARTHROPATHY
     Dosage: 25.0MG AS REQUIRED
     Route: 048
  7. AZD2281 [Suspect]
     Active Substance: OLAPARIB
     Indication: OVARIAN CANCER
     Route: 048
     Dates: start: 20141022, end: 20170124
  8. IBUPROFEN. [Concomitant]
     Active Substance: IBUPROFEN
     Indication: ARTHROPATHY
     Dosage: 1 AS REQUIRED
     Route: 048
  9. ELOCOM [Concomitant]
     Active Substance: MOMETASONE FUROATE
     Indication: PANNICULITIS
     Dosage: EVERY WEEK
     Route: 003

REACTIONS (1)
  - Acute leukaemia [Fatal]

NARRATIVE: CASE EVENT DATE: 20180116
